FAERS Safety Report 14503287 (Version 1)
Quarter: 2018Q1

REPORT INFORMATION
  Report Type: Spontaneous
  Country: US (occurrence: US)
  Receive Date: 20180207
  Receipt Date: 20180207
  Transmission Date: 20180509
  Serious: Yes (Hospitalization)
  Sender: FDA-Public Use
  Company Number: None

PATIENT
  Age: 70 Year
  Sex: Male
  Weight: 87.45 kg

DRUGS (1)
  1. WARFARIN [Suspect]
     Active Substance: WARFARIN
     Indication: ATRIAL FIBRILLATION
     Dates: start: 20131101, end: 20171204

REACTIONS (6)
  - Dyspnoea [None]
  - Fall [None]
  - Fatigue [None]
  - Gastric haemorrhage [None]
  - Presyncope [None]
  - International normalised ratio increased [None]

NARRATIVE: CASE EVENT DATE: 20171204
